FAERS Safety Report 5158260-8 (Version None)
Quarter: 2006Q4

REPORT INFORMATION
  Report Type: 
  Country: None (occurrence: None)
  Receive Date: 20061121
  Receipt Date: 20061121
  Transmission Date: 20070319
  Serious: Yes (Hospitalization)
  Sender: FDA-Public Use
  Company Number: None

PATIENT
  Age: 65 Year
  Sex: Male

DRUGS (5)
  1. DILANTIN [Suspect]
     Indication: CONVULSION
     Dosage: 200 MG BID PO
     Route: 048
     Dates: start: 20050729, end: 20050901
  2. ATENOLOL [Concomitant]
  3. AVAPRO [Concomitant]
  4. LISINOPRIL [Concomitant]
  5. NEXIUM [Concomitant]

REACTIONS (1)
  - STEVENS-JOHNSON SYNDROME [None]
